FAERS Safety Report 19238764 (Version 2)
Quarter: 2021Q2

REPORT INFORMATION
  Report Type: Spontaneous
  Country: US (occurrence: US)
  Receive Date: 20210510
  Receipt Date: 20210519
  Transmission Date: 20210717
  Serious: No
  Sender: FDA-Public Use
  Company Number: US-BEH-2021131270

PATIENT
  Age: 75 Year
  Sex: Female

DRUGS (1)
  1. HIZENTRA [Suspect]
     Active Substance: HUMAN IMMUNOGLOBULIN G
     Route: 065

REACTIONS (8)
  - Infusion site erythema [Unknown]
  - Infusion site swelling [Unknown]
  - Swelling [Unknown]
  - Pruritus [Unknown]
  - Infusion site nodule [Unknown]
  - Intentional dose omission [Unknown]
  - Recalled product administered [Unknown]
  - No adverse event [Unknown]
